FAERS Safety Report 20175397 (Version 1)
Quarter: 2021Q4

REPORT INFORMATION
  Report Type: Other
  Country: HR (occurrence: None)
  Receive Date: 20211213
  Receipt Date: 20211213
  Transmission Date: 20220303
  Serious: Yes (Death, Hospitalization, Other)
  Sender: FDA-Public Use
  Company Number: HR-ROCHE-2971875

PATIENT

DRUGS (7)
  1. TOCILIZUMAB [Suspect]
     Active Substance: TOCILIZUMAB
     Indication: COVID-19
     Route: 065
  2. MYCOPHENOLATE MOFETIL [Suspect]
     Active Substance: MYCOPHENOLATE MOFETIL
     Indication: Prophylaxis against transplant rejection
     Route: 065
  3. TACROLIMUS [Suspect]
     Active Substance: TACROLIMUS
     Indication: Prophylaxis against transplant rejection
     Route: 065
  4. CYCLOSPORINE [Suspect]
     Active Substance: CYCLOSPORINE
     Indication: Prophylaxis against transplant rejection
     Route: 065
  5. AZATHIOPRINE [Suspect]
     Active Substance: AZATHIOPRINE
     Indication: Prophylaxis against transplant rejection
     Route: 065
  6. EVEROLIMUS [Suspect]
     Active Substance: EVEROLIMUS
     Indication: Prophylaxis against transplant rejection
     Route: 065
  7. PREDNISONE [Suspect]
     Active Substance: PREDNISONE
     Indication: Prophylaxis against transplant rejection
     Route: 065

REACTIONS (31)
  - Sepsis [Fatal]
  - COVID-19 [Unknown]
  - Pneumonia [Unknown]
  - Transplant dysfunction [Unknown]
  - Urinary tract infection [Unknown]
  - Deep vein thrombosis [Unknown]
  - Diabetes mellitus [Unknown]
  - Pulmonary embolism [Unknown]
  - Atrial fibrillation [Unknown]
  - Cardiorenal syndrome [Unknown]
  - Retroperitoneal haemorrhage [Unknown]
  - Cytomegalovirus infection reactivation [Unknown]
  - Cytomegalovirus colitis [Unknown]
  - Proteinuria [Unknown]
  - Cytomegalovirus test positive [Unknown]
  - Dyspnoea [Unknown]
  - Fatigue [Unknown]
  - Epstein-Barr virus test positive [Unknown]
  - Neuropathy peripheral [Unknown]
  - Hypertension [Unknown]
  - Cognitive disorder [Unknown]
  - BK polyomavirus test positive [Unknown]
  - Cough [Unknown]
  - Skin disorder [Unknown]
  - Herpes zoster [Unknown]
  - Weight decreased [Unknown]
  - Alopecia [Unknown]
  - Generalised oedema [Unknown]
  - Costochondritis [Unknown]
  - Dizziness [Unknown]
  - Off label use [Unknown]
